FAERS Safety Report 11802300 (Version 1)
Quarter: 2015Q4

REPORT INFORMATION
  Report Type: Spontaneous
  Country: US (occurrence: None)
  Receive Date: 20151203
  Receipt Date: 20151203
  Transmission Date: 20160305
  Serious: Yes (Other)
  Sender: FDA-Public Use
  Company Number: None

PATIENT
  Age: 48 Year
  Sex: Female
  Weight: 99.79 kg

DRUGS (16)
  1. ATIVAN [Concomitant]
     Active Substance: LORAZEPAM
  2. CONTRAVE [Suspect]
     Active Substance: BUPROPION HYDROCHLORIDE\NALTREXONE HYDROCHLORIDE
     Indication: WEIGHT DECREASED
     Dosage: 2 PILLS
     Route: 048
     Dates: start: 201506, end: 201511
  3. FLEXERIL [Concomitant]
     Active Substance: CYCLOBENZAPRINE HYDROCHLORIDE
  4. VITAMIN D3 [Concomitant]
     Active Substance: CHOLECALCIFEROL
  5. VITAMIN B12 [Concomitant]
     Active Substance: CYANOCOBALAMIN
  6. FOLIC ACID. [Concomitant]
     Active Substance: FOLIC ACID
  7. TEMAZEPAM. [Concomitant]
     Active Substance: TEMAZEPAM
  8. NORA-BE [Concomitant]
  9. MELOXICAM. [Concomitant]
     Active Substance: MELOXICAM
  10. WELLBUTRIN [Concomitant]
     Active Substance: BUPROPION HYDROCHLORIDE
  11. RITALIN [Concomitant]
     Active Substance: METHYLPHENIDATE HYDROCHLORIDE
  12. MAGNESIUM [Concomitant]
     Active Substance: MAGNESIUM
  13. ACETAMINOPHEN. [Concomitant]
     Active Substance: ACETAMINOPHEN
  14. TEGRETOL [Concomitant]
     Active Substance: CARBAMAZEPINE
  15. ESCITALOPRAM [Concomitant]
     Active Substance: ESCITALOPRAM OXALATE
  16. IRON [Concomitant]
     Active Substance: IRON

REACTIONS (3)
  - Binge eating [None]
  - Weight increased [None]
  - Obsessive-compulsive disorder [None]

NARRATIVE: CASE EVENT DATE: 20150624
